FAERS Safety Report 10272445 (Version 1)
Quarter: 2014Q2

REPORT INFORMATION
  Report Type: Spontaneous
  Country: US (occurrence: None)
  Receive Date: 20140627
  Receipt Date: 20140627
  Transmission Date: 20141212
  Serious: Yes (Other)
  Sender: FDA-Public Use
  Company Number: ADR-2014-01113

PATIENT
  Age: 25 Year
  Sex: Male

DRUGS (1)
  1. BACLOFEN INTRATHECAL [Suspect]
     Indication: SPINAL CORD INJURY

REACTIONS (4)
  - Drug withdrawal syndrome [None]
  - Muscle spasticity [None]
  - Neoplasm skin [None]
  - Device issue [None]
